FAERS Safety Report 25003338 (Version 1)
Quarter: 2025Q1

REPORT INFORMATION
  Report Type: Spontaneous
  Country: DE (occurrence: DE)
  Receive Date: 20250224
  Receipt Date: 20250224
  Transmission Date: 20250408
  Serious: Yes (Other)
  Sender: BRISTOL-MYERS SQUIBB COMPANY
  Company Number: DE-DCGMA-25204614

PATIENT
  Age: 72 Year
  Sex: Female
  Weight: 81 kg

DRUGS (3)
  1. OPDIVO [Suspect]
     Active Substance: NIVOLUMAB
     Indication: Non-small cell lung cancer
     Route: 042
     Dates: start: 20201221, end: 20220117
  2. IPILIMUMAB [Concomitant]
     Active Substance: IPILIMUMAB
     Indication: Metastatic renal cell carcinoma
     Route: 042
     Dates: start: 20201221, end: 20210222
  3. ZOLEDRONIC ACID [Concomitant]
     Active Substance: ZOLEDRONIC ACID
     Indication: Metastases to bone
     Route: 042
     Dates: start: 20210412

REACTIONS (3)
  - Eosinophilia [Recovering/Resolving]
  - Oedema [Recovering/Resolving]
  - Renal vein thrombosis [Recovering/Resolving]

NARRATIVE: CASE EVENT DATE: 20220101
